FAERS Safety Report 23034071 (Version 3)
Quarter: 2024Q1

REPORT INFORMATION
  Report Type: Report from Study
  Country: US (occurrence: US)
  Receive Date: 20231005
  Receipt Date: 20240222
  Transmission Date: 20240409
  Serious: Yes (Hospitalization, Other)
  Sender: FDA-Public Use
  Company Number: US-JNJFOC-20230956995

PATIENT
  Age: 61 Year
  Sex: Female

DRUGS (5)
  1. TREMFYA [Suspect]
     Active Substance: GUSELKUMAB
     Indication: Psoriasis
     Dosage: 100.00 MG/ML
     Route: 065
     Dates: start: 2021
  2. TREMFYA [Suspect]
     Active Substance: GUSELKUMAB
     Route: 065
     Dates: start: 202001, end: 202006
  3. TREMFYA [Suspect]
     Active Substance: GUSELKUMAB
     Route: 065
     Dates: start: 20231026
  4. TREMFYA [Suspect]
     Active Substance: GUSELKUMAB
     Indication: Psoriasis
     Route: 058
     Dates: start: 20210828
  5. TREMFYA [Suspect]
     Active Substance: GUSELKUMAB

REACTIONS (13)
  - Respiratory tract infection bacterial [Unknown]
  - Chronic obstructive pulmonary disease [Recovered/Resolved]
  - Type 2 diabetes mellitus [Unknown]
  - Disability [Unknown]
  - Cardiac failure congestive [Recovered/Resolved]
  - Dyspnoea [Unknown]
  - Fall [Unknown]
  - Psoriasis [Unknown]
  - Pain in extremity [Unknown]
  - Bone contusion [Unknown]
  - Asthenia [Unknown]
  - Syringe issue [Unknown]
  - Accidental exposure to product [Unknown]

NARRATIVE: CASE EVENT DATE: 20210101
